FAERS Safety Report 7640241-3 (Version None)
Quarter: 2011Q3

REPORT INFORMATION
  Report Type: 
  Country: None (occurrence: None)
  Receive Date: 20110728
  Receipt Date: 20090213
  Transmission Date: 20111222
  Serious: Yes (Other)
  Sender: FDA-Public Use
  Company Number: US-BAYER-200912882NA

PATIENT
  Age: 54 Year
  Sex: Female
  Weight: 73.016 kg

DRUGS (16)
  1. VERAPAMIL SLOW RELEASE [Concomitant]
     Dosage: 240 MG, BID
     Route: 048
     Dates: start: 19960315
  2. RED BLOOD CELLS [Concomitant]
     Dosage: 10 U, UNK
     Route: 042
     Dates: start: 20040813, end: 20040813
  3. TRASYLOL [Suspect]
     Indication: VASCULAR GRAFT
  4. LEXAPRO [Concomitant]
     Dosage: 15 MG / DAILY
  5. DIGOXIN [Concomitant]
     Dosage: 0.125 MG, QOD
     Route: 048
     Dates: start: 19960614
  6. ZOLOFT [Concomitant]
  7. HEPARIN [Concomitant]
     Dosage: 40000 U, UNK
     Route: 042
     Dates: start: 20040813, end: 20040813
  8. ACETYLSALICYLIC ACID SRT [Concomitant]
     Dosage: UNK UNK, QD
     Route: 048
  9. ANCEF [Concomitant]
     Dosage: 1 G, UNK
     Route: 042
     Dates: start: 20040813, end: 20040813
  10. TRASYLOL [Suspect]
     Indication: CARDIAC PACEMAKER REMOVAL
     Dosage: UNK
     Route: 042
     Dates: start: 20040813, end: 20040813
  11. CRYOPRECIPITATES [Concomitant]
     Dosage: 10 U, UNK
     Route: 042
     Dates: start: 20040813, end: 20040813
  12. FRESH FROZEN PLASMA [Concomitant]
     Dosage: 12 U, UNK
     Route: 042
     Dates: start: 20040813, end: 20040813
  13. PLATELETS [Concomitant]
     Dosage: 18 U, UNK
     Route: 042
     Dates: start: 20040813, end: 20040813
  14. ALBUMIN (HUMAN) [Concomitant]
     Dosage: UNK
     Route: 042
     Dates: start: 20040813, end: 20040813
  15. LASIX [Concomitant]
     Dosage: 40 MG, QD
     Route: 048
     Dates: start: 20031008
  16. THROMBIN LOCAL SOLUTION [Concomitant]
     Dosage: UNK
     Route: 061
     Dates: start: 20040813, end: 20040813

REACTIONS (5)
  - PAIN [None]
  - UNEVALUABLE EVENT [None]
  - RENAL FAILURE [None]
  - RENAL FAILURE ACUTE [None]
  - INJURY [None]
